FAERS Safety Report 6672108-1 (Version None)
Quarter: 2010Q2

REPORT INFORMATION
  Report Type: 
  Country: None (occurrence: None)
  Receive Date: 20100407
  Receipt Date: 20100407
  Transmission Date: 20101027
  Serious: Yes (Life-Threatening, Hospitalization, Other)
  Sender: FDA-Public Use
  Company Number: None

PATIENT
  Sex: Male

DRUGS (1)
  1. FOSAMAX [Suspect]
     Indication: BONE DENSITY DECREASED
     Dosage: ONE TABLET ONCE DAILY PO
     Route: 048
     Dates: start: 19970101, end: 20050101

REACTIONS (5)
  - DYSPHAGIA [None]
  - OESOPHAGEAL DISORDER [None]
  - PAIN IN JAW [None]
  - TOOTH LOSS [None]
  - VOMITING [None]
